FAERS Safety Report 10487958 (Version 2)
Quarter: 2014Q4

REPORT INFORMATION
  Report Type: Spontaneous
  Country: CA (occurrence: CA)
  Receive Date: 20141001
  Receipt Date: 20141127
  Transmission Date: 20150528
  Serious: Yes (Death, Other)
  Sender: FDA-Public Use
  Company Number: CA-JNJFOC-20140925008

PATIENT
  Age: 31 Year
  Sex: Female

DRUGS (3)
  1. IBUPROFEN. [Suspect]
     Active Substance: IBUPROFEN
     Indication: DENTAL DISCOMFORT
     Route: 065
  2. MORPHINE SULFATE. [Suspect]
     Active Substance: MORPHINE SULFATE
     Indication: PAIN
     Route: 065
  3. ACETAMINOPHEN. [Suspect]
     Active Substance: ACETAMINOPHEN
     Indication: DENTAL DISCOMFORT
     Route: 065

REACTIONS (9)
  - Respiratory rate decreased [Unknown]
  - Multi-organ failure [Fatal]
  - Heart rate decreased [Unknown]
  - Hepatic failure [Fatal]
  - Depressed level of consciousness [Unknown]
  - Disorientation [Unknown]
  - Drug ineffective [Unknown]
  - Pain [Unknown]
  - Shock [Unknown]

NARRATIVE: CASE EVENT DATE: 20131107
